FAERS Safety Report 9822950 (Version 3)
Quarter: 2014Q1

REPORT INFORMATION
  Report Type: Not Available
  Country: US (occurrence: US)
  Receive Date: 20140116
  Receipt Date: 20140127
  Transmission Date: 20141002
  Serious: Yes (Death, Hospitalization)
  Sender: FDA-Public Use
  Company Number: US-ONYX-2014-0103

PATIENT
  Age: 53 Year
  Sex: Female

DRUGS (1)
  1. KYPROLIS [Suspect]
     Indication: PLASMA CELL MYELOMA
     Route: 042
     Dates: start: 20131125, end: 20131227

REACTIONS (6)
  - Respiratory failure [Fatal]
  - Pulmonary embolism [Fatal]
  - Sepsis [Unknown]
  - Renal failure acute [Unknown]
  - Decubitus ulcer [Unknown]
  - Urinary tract infection [Unknown]
